FAERS Safety Report 13264264 (Version 1)
Quarter: 2017Q1

REPORT INFORMATION
  Report Type: Spontaneous
  Country: US (occurrence: US)
  Receive Date: 20170223
  Receipt Date: 20170223
  Transmission Date: 20170428
  Serious: Yes (Other)
  Sender: FDA-Public Use
  Company Number: None

PATIENT
  Age: 87 Year
  Sex: Female
  Weight: 45.4 kg

DRUGS (15)
  1. ROSTASISTEMAZAPAN [Concomitant]
  2. COMBIGAN [Concomitant]
     Active Substance: BRIMONIDINE TARTRATE\TIMOLOL MALEATE
  3. XIIDRA [Suspect]
     Active Substance: LIFITEGRAST
     Indication: DRY EYE
     Route: 031
     Dates: start: 20170202, end: 20170204
  4. COMBIGAN [Concomitant]
     Active Substance: BRIMONIDINE TARTRATE\TIMOLOL MALEATE
  5. REFRESH OPTIVE ADVANCED [Concomitant]
     Active Substance: CARBOXYMETHYLCELLULOSE SODIUM\GLYCERIN\POLYSORBATE 80
  6. SYSTANE GEL [Concomitant]
  7. TIMINOL [Concomitant]
  8. SYSTANE BALANCE [Concomitant]
     Active Substance: PROPYLENE GLYCOL
  9. VITAM D [Concomitant]
  10. VITAMIN B12 [Concomitant]
     Active Substance: CYANOCOBALAMIN
  11. ARMOUR THYROID [Concomitant]
     Active Substance: THYROID, PORCINE
  12. TRAVATAN Z [Concomitant]
     Active Substance: TRAVOPROST
  13. ROSTASIS [Concomitant]
  14. LOTEMAX [Concomitant]
     Active Substance: LOTEPREDNOL ETABONATE
  15. XIIDRA [Suspect]
     Active Substance: LIFITEGRAST
     Indication: MALIGNANT MELANOMA
     Route: 031
     Dates: start: 20170202, end: 20170204

REACTIONS (7)
  - Temporomandibular joint syndrome [None]
  - Eye irritation [None]
  - Dysgeusia [None]
  - Trismus [None]
  - Pain in jaw [None]
  - Vision blurred [None]
  - Jaw disorder [None]

NARRATIVE: CASE EVENT DATE: 20170202
